FAERS Safety Report 16302242 (Version 1)
Quarter: 2019Q2

REPORT INFORMATION
  Report Type: Report from Study
  Country: None (occurrence: PR)
  Receive Date: 20190512
  Receipt Date: 20190512
  Transmission Date: 20190711
  Serious: Yes (Other)
  Sender: FDA-Public Use
  Company Number: PR-ABBVIE-19K-131-2774466-00

PATIENT
  Age: 47 Year
  Sex: Female
  Weight: 69.46 kg

DRUGS (3)
  1. CLONAZEPAM. [Concomitant]
     Active Substance: CLONAZEPAM
     Indication: ANXIETY
     Route: 048
     Dates: start: 2011
  2. HUMIRA [Suspect]
     Active Substance: ADALIMUMAB
     Indication: UVEITIS
     Route: 058
     Dates: start: 2016, end: 2017
  3. TEMAZEPAM. [Concomitant]
     Active Substance: TEMAZEPAM
     Indication: SLEEP DISORDER THERAPY
     Route: 048
     Dates: start: 2011

REACTIONS (7)
  - Retinal operation [Recovered/Resolved]
  - Drug ineffective [Unknown]
  - Uterine haemorrhage [Recovered/Resolved]
  - Large intestine polyp [Recovering/Resolving]
  - Uterine leiomyoma [Recovered/Resolved]
  - Onychomycosis [Recovered/Resolved]
  - Gastritis [Recovering/Resolving]

NARRATIVE: CASE EVENT DATE: 201808
